FAERS Safety Report 6708625-5 (Version None)
Quarter: 2010Q2

REPORT INFORMATION
  Report Type: 
  Country: None (occurrence: None)
  Receive Date: 20100503
  Receipt Date: 20100422
  Transmission Date: 20101027
  Serious: Yes (Hospitalization)
  Sender: FDA-Public Use
  Company Number: JP-ELI_LILLY_AND_COMPANY-JP201003002549

PATIENT
  Weight: 2.3 kg

DRUGS (4)
  1. ZYPREXA [Suspect]
     Indication: SCHIZOPHRENIA
     Dosage: 5 MG, DAILY (1/D)
     Route: 064
     Dates: start: 20091130
  2. RISPERDAL [Concomitant]
     Indication: SCHIZOPHRENIA
     Dosage: 1 MG, DAILY (1/D)
     Route: 064
     Dates: start: 20090530, end: 20091129
  3. UTEMERIN [Concomitant]
     Indication: THREATENED LABOUR
     Route: 064
     Dates: start: 20091208
  4. UTEMERIN [Concomitant]
     Route: 064
     Dates: start: 20091208, end: 20091210

REACTIONS (2)
  - DRUG EXPOSURE DURING PREGNANCY [None]
  - NEONATAL ASPIRATION [None]
